FAERS Safety Report 6924809-5 (Version None)
Quarter: 2010Q3

REPORT INFORMATION
  Report Type: 
  Country: None (occurrence: None)
  Receive Date: 20100816
  Receipt Date: 20100810
  Transmission Date: 20110219
  Serious: Yes (Hospitalization)
  Sender: FDA-Public Use
  Company Number: US-RB-011007-10

PATIENT
  Sex: Female

DRUGS (10)
  1. SUBOXONE [Suspect]
     Indication: PAIN
     Route: 060
     Dates: start: 20100612, end: 20100621
  2. SUBOXONE [Suspect]
     Indication: DRUG DEPENDENCE
     Dosage: TAKES 16-24MG DAILY
     Route: 060
     Dates: start: 20100601
  3. SUBUTEX [Suspect]
     Indication: DRUG DEPENDENCE
     Dosage: UNKNOWN DOSING DETAILS
     Route: 060
     Dates: start: 20080101, end: 20080101
  4. TIZANIDINE HCL [Concomitant]
     Indication: MUSCLE RELAXANT THERAPY
     Dosage: UNKNOWN DOSE
     Route: 065
  5. TIZANIDINE HCL [Concomitant]
     Indication: SLEEP DISORDER
     Dosage: UNKNOWN DOSE
     Route: 065
  6. XANAX [Concomitant]
     Indication: SLEEP DISORDER
     Dosage: UNKNOWN
     Route: 065
  7. XANAX [Concomitant]
     Indication: ANXIETY
     Dosage: UNKNOWN
     Route: 065
  8. ANTIDEPRESSANT (UNKNOWN) [Concomitant]
     Indication: DEPRESSION
     Dosage: UNKNOWN DOSING DETAILS
     Route: 065
  9. ABILIFY [Concomitant]
     Indication: DEPRESSION
     Dosage: UNKNOWN DOSING DETAILS
     Route: 065
  10. TORADOL [Concomitant]
     Indication: HEADACHE
     Dosage: UNKNOWN AS NEEDED
     Route: 065

REACTIONS (17)
  - ANXIETY [None]
  - BACK PAIN [None]
  - BLOOD PRESSURE FLUCTUATION [None]
  - CONCUSSION [None]
  - CONSTIPATION [None]
  - EYELID FUNCTION DISORDER [None]
  - FALL [None]
  - GAIT DISTURBANCE [None]
  - HEADACHE [None]
  - HYPOAESTHESIA [None]
  - HYPOAESTHESIA FACIAL [None]
  - INJURY [None]
  - LETHARGY [None]
  - LOGORRHOEA [None]
  - PARAESTHESIA [None]
  - TREMOR [None]
  - VISUAL IMPAIRMENT [None]
